FAERS Safety Report 10629874 (Version 2)
Quarter: 2014Q4

REPORT INFORMATION
  Report Type: Spontaneous
  Country: US (occurrence: US)
  Receive Date: 20141205
  Receipt Date: 20141205
  Transmission Date: 20150529
  Serious: No
  Sender: FDA-Public Use
  Company Number: US-BRISTOL-MYERS SQUIBB COMPANY-21420609

PATIENT
  Age: 79 Year
  Sex: Male
  Weight: 104.76 kg

DRUGS (16)
  1. BYETTA [Suspect]
     Active Substance: EXENATIDE
     Indication: WEIGHT DECREASED
     Dosage: RESTART ON AUG2014-ONGOING,BAT.NO-AM140010,EXP.DT-APR2016
     Route: 058
     Dates: start: 201408
  2. BYETTA [Suspect]
     Active Substance: EXENATIDE
     Indication: TYPE 2 DIABETES MELLITUS
     Dosage: RESTART ON AUG2014-ONGOING,BAT.NO-AM140010,EXP.DT-APR2016
     Route: 058
     Dates: start: 201408
  3. METOPROLOL [Concomitant]
     Active Substance: METOPROLOL
  4. LYRICA [Concomitant]
     Active Substance: PREGABALIN
     Indication: NEUROPATHY PERIPHERAL
  5. LUPRON [Concomitant]
     Active Substance: LEUPROLIDE ACETATE
  6. GLUCOSAMINE [Concomitant]
     Active Substance: GLUCOSAMINE
  7. PRAVACHOL [Concomitant]
     Active Substance: PRAVASTATIN SODIUM
  8. ASPIRIN. [Concomitant]
     Active Substance: ASPIRIN
  9. CALCIUM [Concomitant]
     Active Substance: CALCIUM
  10. GLIPIZIDE. [Concomitant]
     Active Substance: GLIPIZIDE
  11. MULTIVITAMIN [Concomitant]
     Active Substance: VITAMINS
  12. FENOFIBRATE. [Concomitant]
     Active Substance: FENOFIBRATE
  13. LASIX [Concomitant]
     Active Substance: FUROSEMIDE
  14. AMLODIPINE [Concomitant]
     Active Substance: AMLODIPINE BESYLATE
     Indication: BLOOD PRESSURE
  15. NOVOLIN [Concomitant]
     Active Substance: INSULIN HUMAN
  16. VITAMINS [Concomitant]
     Active Substance: VITAMINS

REACTIONS (4)
  - Blood glucose increased [Unknown]
  - Weight decreased [Recovered/Resolved]
  - Off label use [Unknown]
  - Drug dose omission [Unknown]
